FAERS Safety Report 11464096 (Version 1)
Quarter: 2015Q3

REPORT INFORMATION
  Report Type: Spontaneous
  Country: US (occurrence: US)
  Receive Date: 20150831
  Receipt Date: 20150831
  Transmission Date: 20151125
  Serious: Yes (Other)
  Sender: FDA-Public Use
  Company Number: US-ELI_LILLY_AND_COMPANY-US201106003290

PATIENT
  Age: 51 Year
  Sex: Female

DRUGS (7)
  1. TRICOR [Concomitant]
     Active Substance: FENOFIBRATE
  2. ZOCOR [Concomitant]
     Active Substance: SIMVASTATIN
  3. METFORMIN [Concomitant]
     Active Substance: METFORMIN HYDROCHLORIDE
     Dosage: 2000 MG, QD
  4. CYMBALTA [Suspect]
     Active Substance: DULOXETINE HYDROCHLORIDE
     Indication: PAIN
     Dosage: 60 MG, QD
  5. ASPIRIN. [Concomitant]
     Active Substance: ASPIRIN
     Dosage: 81 MG, QD
  6. LISINOPRIL. [Concomitant]
     Active Substance: LISINOPRIL
  7. TRAMADOL. [Concomitant]
     Active Substance: TRAMADOL

REACTIONS (12)
  - Heart rate increased [Unknown]
  - Drug withdrawal syndrome [Unknown]
  - Fatigue [Unknown]
  - Suicidal ideation [Unknown]
  - Abnormal dreams [Unknown]
  - Hallucination [Unknown]
  - Hyperaesthesia [Unknown]
  - Nervousness [Unknown]
  - Abnormal sensation in eye [Unknown]
  - Blood pressure increased [Unknown]
  - Insomnia [Unknown]
  - Feeling abnormal [Unknown]
